FAERS Safety Report 16715898 (Version 1)
Quarter: 2019Q4

REPORT INFORMATION
  Report Type: Spontaneous
  Country: SE (occurrence: SE)
  Receive Date: 20190817
  Receipt Date: 20190817
  Transmission Date: 20200122
  Serious: Yes (Hospitalization, Disabling)
  Sender: FDA-Public Use
  Company Number: None

PATIENT
  Age: 28 Year
  Sex: Female
  Weight: 51 kg

DRUGS (1)
  1. ELOCON [Suspect]
     Active Substance: MOMETASONE FUROATE

REACTIONS (2)
  - Steroid withdrawal syndrome [None]
  - Skin exfoliation [None]

NARRATIVE: CASE EVENT DATE: 20190119
